FAERS Safety Report 5989824-7 (Version None)
Quarter: 2008Q4

REPORT INFORMATION
  Report Type: 
  Country: None (occurrence: None)
  Receive Date: 20081210
  Receipt Date: 20080124
  Transmission Date: 20090506
  Serious: No
  Sender: FDA-Public Use
  Company Number: US-AMGEN-KDL258447

PATIENT
  Sex: Female
  Weight: 59.9 kg

DRUGS (14)
  1. ENBREL [Suspect]
     Indication: RHEUMATOID ARTHRITIS
     Route: 058
     Dates: start: 20071210, end: 20080110
  2. METHOTREXATE [Concomitant]
  3. PREDNISONE TAB [Concomitant]
  4. PLAQUENIL [Concomitant]
  5. FOLIC ACID [Concomitant]
  6. EFFEXOR [Concomitant]
  7. PROCARDIA [Concomitant]
  8. ESTRACE [Concomitant]
  9. ALLEGRA [Concomitant]
  10. UNSPECIFIED MEDICATION [Concomitant]
  11. DOXEPIN HCL [Concomitant]
  12. MICRO-K [Concomitant]
  13. EVOREL [Concomitant]
  14. ACETONE [Concomitant]

REACTIONS (2)
  - COUGH [None]
  - RASH [None]
